FAERS Safety Report 6822059-4 (Version None)
Quarter: 2010Q3

REPORT INFORMATION
  Report Type: 
  Country: None (occurrence: None)
  Receive Date: 20100706
  Receipt Date: 20100622
  Transmission Date: 20110219
  Serious: Yes (Other)
  Sender: FDA-Public Use
  Company Number: 1000012354

PATIENT
  Age: 44 Year
  Sex: Female

DRUGS (3)
  1. ESCITALOPRAM [Suspect]
     Indication: DEPRESSION
     Dosage: 5MG (5MG, 1 IN 1D), ORAL
     Route: 048
  2. ESCITALOPRAM [Suspect]
     Indication: DEPRESSION
     Dosage: 10MG (10 MG, 1 IN 1D ORAL)
     Route: 048
  3. B12 VITAMIN [Concomitant]

REACTIONS (3)
  - EYELID OEDEMA [None]
  - FACE OEDEMA [None]
  - HYPERSENSITIVITY [None]
